FAERS Safety Report 20288895 (Version 1)
Quarter: 2022Q1

REPORT INFORMATION
  Report Type: Report from Study
  Country: ES (occurrence: ES)
  Receive Date: 20220104
  Receipt Date: 20220104
  Transmission Date: 20220423
  Serious: Yes (Hospitalization, Other)
  Sender: FDA-Public Use
  Company Number: ES-BEH-2021139926

PATIENT
  Age: 50 Year
  Sex: Male
  Weight: 93.6 kg

DRUGS (5)
  1. RIASTAP [Suspect]
     Active Substance: FIBRINOGEN HUMAN
     Indication: Hypofibrinogenaemia
     Dosage: 4 GRAM
     Route: 042
     Dates: start: 20210311, end: 20210312
  2. RIASTAP [Suspect]
     Active Substance: FIBRINOGEN HUMAN
     Indication: Liver transplant
  3. TACROLIMUS [Concomitant]
     Active Substance: TACROLIMUS
  4. MYCOPHENOLIC ACID [Concomitant]
     Active Substance: MYCOPHENOLIC ACID
  5. EVEROLIMUS [Concomitant]
     Active Substance: EVEROLIMUS

REACTIONS (6)
  - Liver transplant rejection [Recovered/Resolved]
  - Hyperglycaemia [Unknown]
  - Acute kidney injury [Unknown]
  - Pancytopenia [Unknown]
  - No adverse event [Unknown]
  - Off label use [Unknown]

NARRATIVE: CASE EVENT DATE: 20210322
